FAERS Safety Report 17354545 (Version 1)
Quarter: 2020Q1

REPORT INFORMATION
  Report Type: Spontaneous
  Country: US (occurrence: US)
  Receive Date: 20200116
  Receipt Date: 20200116
  Transmission Date: 20200409
  Serious: Yes (Other)
  Sender: FDA-Public Use
  Company Number: None

PATIENT
  Sex: Male

DRUGS (11)
  1. HUMIRA [Suspect]
     Active Substance: ADALIMUMAB
     Indication: CROHN^S DISEASE
     Route: 058
     Dates: start: 20191030
  2. DOXYCYCL HYC [Concomitant]
  3. HYDROCO [Concomitant]
  4. LISINOPRIL. [Concomitant]
     Active Substance: LISINOPRIL
  5. PANTOPRAZOLE [Concomitant]
     Active Substance: PANTOPRAZOLE
  6. CYANOCOBALAM [Concomitant]
     Active Substance: CYANOCOBALAMIN
  7. ISOSORB [Concomitant]
  8. ZOLPIDEM ER [Concomitant]
     Active Substance: ZOLPIDEM TARTRATE
  9. TAMSULOSIN [Concomitant]
     Active Substance: TAMSULOSIN
  10. ELIQUIS [Concomitant]
     Active Substance: APIXABAN
  11. ONDANSETRON [Concomitant]
     Active Substance: ONDANSETRON

REACTIONS (1)
  - Therapy cessation [None]
